FAERS Safety Report 19573335 (Version 6)
Quarter: 2022Q3

REPORT INFORMATION
  Report Type: Report from Study
  Country: JP (occurrence: JP)
  Receive Date: 20210717
  Receipt Date: 20220808
  Transmission Date: 20221027
  Serious: Yes (Hospitalization, Other)
  Sender: FDA-Public Use
  Company Number: JP-BRISTOL-MYERS SQUIBB COMPANY-BMS-2021-069245

PATIENT
  Age: 68 Year
  Sex: Female
  Weight: 39 kg

DRUGS (27)
  1. NIVOLUMAB [Suspect]
     Active Substance: NIVOLUMAB
     Indication: Oesophageal carcinoma
     Dosage: 240 MILLIGRAM
     Route: 041
     Dates: start: 20210526
  2. NIVOLUMAB [Suspect]
     Active Substance: NIVOLUMAB
     Dosage: UNK
     Route: 041
     Dates: start: 20210730, end: 20220523
  3. NIVOLUMAB [Suspect]
     Active Substance: NIVOLUMAB
     Dosage: UNK
     Route: 041
     Dates: start: 20210810
  4. CISPLATIN [Suspect]
     Active Substance: CISPLATIN
     Indication: Oesophageal carcinoma
     Dosage: 75 MG/M2/DAY
     Route: 065
     Dates: start: 20210526
  5. CISPLATIN [Suspect]
     Active Substance: CISPLATIN
     Dosage: 37.5 MG/M2/DAY
     Route: 065
     Dates: start: 20210623
  6. CISPLATIN [Suspect]
     Active Substance: CISPLATIN
     Dosage: 37.5 MG/M2/DAY
     Route: 065
     Dates: start: 20210730
  7. FLUOROURACIL [Suspect]
     Active Substance: FLUOROURACIL
     Indication: Oesophageal carcinoma
     Dosage: 1000 MG/M2/DAY, DAY1-DAY4
     Route: 065
     Dates: start: 20210526
  8. FLUOROURACIL [Suspect]
     Active Substance: FLUOROURACIL
     Dosage: 750 MG/M2/DAY
     Route: 065
     Dates: start: 20210623
  9. FLUOROURACIL [Suspect]
     Active Substance: FLUOROURACIL
     Dosage: 500 MG/M2/DAY
     Route: 065
     Dates: start: 20210730
  10. CILNIDIPINE [Concomitant]
     Active Substance: CILNIDIPINE
     Indication: Hypertension
     Dosage: 10 MG, EVERYDAY
     Route: 048
     Dates: start: 20210525
  11. CILNIDIPINE [Concomitant]
     Active Substance: CILNIDIPINE
     Dosage: 10 MG, EVERYDAY
     Route: 048
  12. HALCION [Concomitant]
     Active Substance: TRIAZOLAM
     Indication: Insomnia
     Dosage: 0.25 MG, PRN
     Route: 048
  13. HALCION [Concomitant]
     Active Substance: TRIAZOLAM
     Dosage: 0.25 MG, PRN
     Route: 048
  14. HALCION [Concomitant]
     Active Substance: TRIAZOLAM
     Dosage: 0.25 MG, PRN
     Route: 048
  15. ALLOPURINOL [Concomitant]
     Active Substance: ALLOPURINOL
     Indication: Prophylaxis
     Dosage: 100 MG, PRN
     Route: 002
     Dates: start: 20210525
  16. HEPARINOID [Concomitant]
     Indication: Skin disorder prophylaxis
     Dosage: APPROPRIATE AMOUNT, Q12H
     Route: 061
     Dates: start: 20210527
  17. HEPARINOID [Concomitant]
  18. ALLOID G [Concomitant]
     Active Substance: SODIUM ALGINATE
     Indication: Oesophagitis
     Dosage: 60 ML, Q8H
     Route: 048
     Dates: start: 20210623
  19. PIRENOXINE [Concomitant]
     Active Substance: PIRENOXINE
     Indication: Cataract
     Dosage: APPROPRIATE AMOUNT, Q12H
     Route: 047
     Dates: start: 20210604
  20. PIRENOXINE [Concomitant]
     Active Substance: PIRENOXINE
  21. MAGNESIUM OXIDE [Concomitant]
     Active Substance: MAGNESIUM OXIDE
     Indication: Constipation
     Dosage: 660 MG, PRN
     Route: 048
     Dates: start: 20210625
  22. MAGNESIUM OXIDE [Concomitant]
     Active Substance: MAGNESIUM OXIDE
  23. VALSARTAN [Concomitant]
     Active Substance: VALSARTAN
     Indication: Hypertension
     Dosage: 10 MG, EVERYDAY
     Route: 048
     Dates: start: 20210525
  24. VALSARTAN [Concomitant]
     Active Substance: VALSARTAN
  25. NEXIUM [Concomitant]
     Active Substance: ESOMEPRAZOLE MAGNESIUM
     Indication: Duodenal ulcer
     Dosage: 20 MG, EVERYDAY
     Route: 048
     Dates: start: 20210524
  26. SODIUM GUALENATE [Concomitant]
     Active Substance: SODIUM GUALENATE
     Indication: Prophylaxis
     Dosage: APPROPRIATE AMOUNT Q8H
     Route: 002
     Dates: start: 20210525
  27. VALSARTAN [Concomitant]
     Active Substance: VALSARTAN
     Indication: Hypertension
     Dosage: Q8H
     Route: 048
     Dates: start: 20210525

REACTIONS (2)
  - Oesophagitis [Recovering/Resolving]
  - Oropharyngeal cancer [Recovered/Resolved]

NARRATIVE: CASE EVENT DATE: 20210709
